FAERS Safety Report 15506601 (Version 9)
Quarter: 2018Q4

REPORT INFORMATION
  Report Type: Report from Study
  Country: AT (occurrence: AT)
  Receive Date: 20181016
  Receipt Date: 20181220
  Transmission Date: 20190205
  Serious: Yes (Hospitalization, Other)
  Sender: FDA-Public Use
  Company Number: PHHY2018AT068843

PATIENT
  Age: 69 Year
  Sex: Male
  Weight: 99 kg

DRUGS (13)
  1. MEKINIST [Suspect]
     Active Substance: TRAMETINIB DIMETHYL SULFOXIDE
     Dosage: 1 MG, UNK
     Route: 048
     Dates: start: 20181031, end: 20181031
  2. DABRAFENIB [Suspect]
     Active Substance: DABRAFENIB
     Indication: METASTATIC MALIGNANT MELANOMA
     Dosage: 300 MG, UNK
     Route: 048
     Dates: start: 20180714, end: 20180807
  3. DABRAFENIB [Suspect]
     Active Substance: DABRAFENIB
     Dosage: 300 MG, UNK
     Route: 048
     Dates: start: 20180808, end: 20180808
  4. DABRAFENIB [Suspect]
     Active Substance: DABRAFENIB
     Dosage: 100 MG, UNK
     Route: 048
     Dates: start: 20181011, end: 20181011
  5. MEKINIST [Suspect]
     Active Substance: TRAMETINIB DIMETHYL SULFOXIDE
     Dosage: 1.5 MG, UNK
     Route: 048
     Dates: start: 20181011, end: 20181011
  6. DABRAFENIB [Suspect]
     Active Substance: DABRAFENIB
     Dosage: 150 MG, UNK
     Route: 048
     Dates: start: 20180904, end: 20181003
  7. MEKINIST [Suspect]
     Active Substance: TRAMETINIB DIMETHYL SULFOXIDE
     Dosage: 1.5 MG, UNK
     Route: 048
     Dates: start: 20180904, end: 20181003
  8. DABRAFENIB [Suspect]
     Active Substance: DABRAFENIB
     Dosage: 100 MG, UNK
     Route: 048
     Dates: start: 20181031, end: 20181031
  9. MEKINIST [Suspect]
     Active Substance: TRAMETINIB DIMETHYL SULFOXIDE
     Dosage: 1 MG, UNK
     Route: 048
     Dates: start: 20181030, end: 20181030
  10. DABRAFENIB [Suspect]
     Active Substance: DABRAFENIB
     Dosage: 100 MG, UNK
     Route: 048
     Dates: start: 20181030, end: 20181030
  11. MEKINIST [Suspect]
     Active Substance: TRAMETINIB DIMETHYL SULFOXIDE
     Indication: METASTATIC MALIGNANT MELANOMA
     Dosage: 2 MG, UNK
     Route: 048
     Dates: start: 20180714, end: 20180807
  12. MEKINIST [Suspect]
     Active Substance: TRAMETINIB DIMETHYL SULFOXIDE
     Dosage: 2 MG, UNK
     Route: 048
     Dates: start: 20180808, end: 20180808
  13. CEFTRIAXON [Suspect]
     Active Substance: CEFTRIAXONE
     Indication: PRODUCT USED FOR UNKNOWN INDICATION
     Route: 042

REACTIONS (25)
  - Neutropenia [Recovered/Resolved]
  - Facial paralysis [Recovering/Resolving]
  - Spinal pain [Recovering/Resolving]
  - Fall [Not Recovered/Not Resolved]
  - Flatulence [Recovered/Resolved]
  - Hyponatraemia [Recovered/Resolved]
  - Pyrexia [Recovered/Resolved]
  - Pyrexia [Recovered/Resolved]
  - Nausea [Recovered/Resolved]
  - Fatigue [Recovered/Resolved]
  - Inflammation [Recovered/Resolved]
  - Pyrexia [Recovered/Resolved]
  - General physical health deterioration [Recovered/Resolved]
  - Chills [Recovered/Resolved]
  - Abdominal pain lower [Recovered/Resolved]
  - Pyrexia [Recovered/Resolved]
  - Chills [Recovered/Resolved]
  - Cough [Recovered/Resolved]
  - Chills [Recovered/Resolved]
  - Inflammation [Recovered/Resolved]
  - Nausea [Recovered/Resolved]
  - Nausea [Recovered/Resolved]
  - General physical health deterioration [Recovered/Resolved]
  - Chills [Recovered/Resolved]
  - Nausea [Recovered/Resolved]

NARRATIVE: CASE EVENT DATE: 20180714
